FAERS Safety Report 14643522 (Version 1)
Quarter: 2018Q1

REPORT INFORMATION
  Report Type: Spontaneous
  Country: US (occurrence: US)
  Receive Date: 20180315
  Receipt Date: 20180315
  Transmission Date: 20180509
  Serious: Yes (Other)
  Sender: FDA-Public Use
  Company Number: US-BAYER-2018-044889

PATIENT
  Age: 61 Year
  Sex: Female
  Weight: 78.96 kg

DRUGS (1)
  1. ALKA-SELTZER PLUS DAY NON DROWSY COLD MEDICINE CITRUS [Suspect]
     Active Substance: ASPIRIN\DEXTROMETHORPHAN HYDROBROMIDE\PHENYLEPHRINE BITARTRATE
     Dosage: 2 DF, UNK
     Route: 048

REACTIONS (3)
  - Drug withdrawal headache [Unknown]
  - Drug dependence [Unknown]
  - Incorrect drug administration duration [Unknown]
